FAERS Safety Report 11349826 (Version 1)
Quarter: 2015Q3

REPORT INFORMATION
  Report Type: Spontaneous
  Country: US (occurrence: None)
  Receive Date: 20150709
  Receipt Date: 20150709
  Transmission Date: 20151125
  Serious: Yes (Other)
  Sender: FDA-Public Use
  Company Number: PHEH2014US021880

PATIENT

DRUGS (1)
  1. GLEEVEC [Suspect]
     Active Substance: IMATINIB MESYLATE
     Indication: GASTROINTESTINAL STROMAL CANCER
     Dates: start: 2010, end: 2014

REACTIONS (3)
  - Gastrointestinal stromal cancer [None]
  - Malignant neoplasm progression [None]
  - Drug ineffective [None]
